FAERS Safety Report 7101900-4 (Version None)
Quarter: 2010Q4

REPORT INFORMATION
  Report Type: 
  Country: None (occurrence: None)
  Receive Date: 20101109
  Receipt Date: 20101102
  Transmission Date: 20110411
  Serious: Yes (Hospitalization)
  Sender: FDA-Public Use
  Company Number: US-1183629

PATIENT
  Age: 80 Year
  Sex: Male
  Weight: 162 kg

DRUGS (5)
  1. VIGAMOX [Suspect]
     Indication: CONJUNCTIVITIS BACTERIAL
     Dosage: 1 GTT Q4H QD OPHTHALMIC
     Route: 047
     Dates: start: 20100927
  2. COUMADIN [Concomitant]
  3. PRAVASTATIN [Concomitant]
  4. METOPROLOL [Concomitant]
  5. PATANOL [Concomitant]

REACTIONS (8)
  - CONDITION AGGRAVATED [None]
  - CONJUNCTIVAL OEDEMA [None]
  - DEHYDRATION [None]
  - DIPLOPIA [None]
  - ERYTHEMA OF EYELID [None]
  - EYELID OEDEMA [None]
  - HYPERSENSITIVITY [None]
  - LACRIMATION INCREASED [None]
